FAERS Safety Report 5775334-9 (Version None)
Quarter: 2008Q2

REPORT INFORMATION
  Report Type: 
  Country: None (occurrence: None)
  Receive Date: 20080612
  Receipt Date: 20080609
  Transmission Date: 20081010
  Serious: Yes (Hospitalization)
  Sender: FDA-Public Use
  Company Number: 2008SP006015

PATIENT
  Age: 49 Year
  Sex: Male

DRUGS (3)
  1. PEG-INTRON [Suspect]
     Indication: CHRONIC HEPATITIS
     Dosage: 150 MCG;QW;SC
     Route: 058
     Dates: start: 20070806
  2. REBETOL [Suspect]
     Indication: HEPATITIS C
     Dosage: 1200 MG;QD;PO
     Route: 048
     Dates: start: 20070806
  3. EPOGEN [Suspect]
     Indication: ANAEMIA
     Dosage: SC
     Route: 058

REACTIONS (2)
  - ABDOMINAL WALL DISORDER [None]
  - NECROSIS [None]
